FAERS Safety Report 8697899 (Version 2)
Quarter: 2013Q4

REPORT INFORMATION
  Report Type: Spontaneous
  Country: US (occurrence: US)
  Receive Date: 20120801
  Receipt Date: 20131105
  Transmission Date: 20140711
  Serious: Yes (Other)
  Sender: FDA-Public Use
  Company Number: US-009507513-1207USA011233

PATIENT
  Age: 63 Year
  Sex: Male

DRUGS (6)
  1. ZOCOR [Suspect]
     Dosage: 1 DF, QD
  2. LIPITOR [Suspect]
     Dosage: 20 MG, UNK
  3. LIPITOR [Suspect]
     Dosage: 40 MG, UNK
  4. OMEPRAZOLE [Concomitant]
  5. CHONDROITIN SULFATE SODIUM (+) GLUCOSAMINE SULFATE [Concomitant]
  6. METOPROLOL [Concomitant]

REACTIONS (5)
  - Abasia [Unknown]
  - Alanine aminotransferase increased [Unknown]
  - Autoimmune haemolytic anaemia [Unknown]
  - Muscle spasms [Unknown]
  - Aspartate aminotransferase increased [Unknown]
